FAERS Safety Report 16322498 (Version 2)
Quarter: 2019Q2

REPORT INFORMATION
  Report Type: Spontaneous
  Country: HU (occurrence: HU)
  Receive Date: 20190516
  Receipt Date: 20190531
  Transmission Date: 20190711
  Serious: Yes (Other)
  Sender: FDA-Public Use
  Company Number: HU-009507513-1905HUN002726

PATIENT
  Age: 66 Year
  Sex: Female

DRUGS (13)
  1. ONDANSETRON [Suspect]
     Active Substance: ONDANSETRON
     Indication: NAUSEA
     Route: 065
  2. SOMATULINE [Concomitant]
     Active Substance: LANREOTIDE ACETATE
     Indication: PRODUCT USED FOR UNKNOWN INDICATION
     Dosage: 120 MG, QMO (ON EVERY 28 DAYS)
     Route: 065
     Dates: start: 20181203
  3. CAPECITABINE. [Concomitant]
     Active Substance: CAPECITABINE
     Indication: PRODUCT USED FOR UNKNOWN INDICATION
     Dosage: UNK (3 CYCLES)
     Route: 065
     Dates: start: 20190110
  4. TEMOZOLOMIDE. [Suspect]
     Active Substance: TEMOZOLOMIDE
     Indication: PRODUCT USED FOR UNKNOWN INDICATION
     Dosage: UNK (3 CYCLES)
     Route: 065
     Dates: start: 20190110
  5. FLUOROURACIL (+) LEUCOVORIN CALCIUM (+) OXALIPLATIN [Suspect]
     Active Substance: FLUOROURACIL\LEUCOVORIN CALCIUM\OXALIPLATIN
     Indication: GASTROENTEROPANCREATIC NEUROENDOCRINE TUMOUR DISEASE
     Dosage: UNK, CYCLIC (6 CYCLES)
     Route: 065
     Dates: start: 20170628, end: 20170920
  6. FASTUM [Concomitant]
     Active Substance: KETOPROFEN
     Indication: PRODUCT USED FOR UNKNOWN INDICATION
     Dosage: UNK
     Route: 065
  7. LOPEDIUM [Suspect]
     Active Substance: LOPERAMIDE
     Indication: STOMATITIS
     Dosage: UNK
     Route: 065
  8. AFINITOR [Suspect]
     Active Substance: EVEROLIMUS
     Indication: GASTROENTEROPANCREATIC NEUROENDOCRINE TUMOUR DISEASE
     Dosage: 5 MG, QD
     Route: 065
  9. GRANISETRON [Concomitant]
     Active Substance: GRANISETRON
     Indication: PRODUCT USED FOR UNKNOWN INDICATION
     Dosage: UNK
     Route: 065
  10. LOPEDIUM [Suspect]
     Active Substance: LOPERAMIDE
     Indication: DIARRHOEA
  11. ONDANSETRON [Suspect]
     Active Substance: ONDANSETRON
     Indication: VOMITING
  12. AFINITOR [Suspect]
     Active Substance: EVEROLIMUS
     Dosage: 10 MG, QD
     Dates: start: 20171103
  13. SANDOSTATIN [Suspect]
     Active Substance: OCTREOTIDE ACETATE
     Indication: PRODUCT USED FOR UNKNOWN INDICATION
     Dosage: 30 MG, QMO (IN EVERY FOUR WEEK)
     Route: 030

REACTIONS (15)
  - Oedema peripheral [Recovered/Resolved]
  - Metastases to liver [Unknown]
  - Metastases to lymph nodes [Unknown]
  - Diarrhoea [Recovered/Resolved]
  - Weight decreased [Unknown]
  - Nausea [Recovered/Resolved]
  - Gastroenteropancreatic neuroendocrine tumour disease [Unknown]
  - Abdominal distension [Unknown]
  - Malignant neoplasm progression [Unknown]
  - Vomiting [Recovered/Resolved]
  - Arthralgia [Recovered/Resolved]
  - Drug ineffective [Unknown]
  - Inappropriate schedule of product administration [Unknown]
  - Abdominal pain [Unknown]
  - Stomatitis [Recovered/Resolved]

NARRATIVE: CASE EVENT DATE: 20170421
